FAERS Safety Report 18839836 (Version 2)
Quarter: 2021Q1

REPORT INFORMATION
  Report Type: Report from Study
  Country: None (occurrence: US)
  Receive Date: 20210204
  Receipt Date: 20210301
  Transmission Date: 20210419
  Serious: Yes (Other)
  Sender: FDA-Public Use
  Company Number: US-ABBVIE-20K-163-3596071-00

PATIENT
  Age: 74 Year
  Sex: Female
  Weight: 70.37 kg

DRUGS (2)
  1. CREON [Suspect]
     Active Substance: PANCRELIPASE AMYLASE\PANCRELIPASE LIPASE\PANCRELIPASE PROTEASE
     Indication: PANCREATIC FAILURE
     Dosage: 2 CAPSULES WITH MEALS?1 CAPSULE WITH SNACKS
     Route: 048
     Dates: start: 202007, end: 202102
  2. CREON [Suspect]
     Active Substance: PANCRELIPASE AMYLASE\PANCRELIPASE LIPASE\PANCRELIPASE PROTEASE
     Dosage: 1 CAPSULE PER MEAL AND SNACK
     Route: 048
     Dates: start: 202102

REACTIONS (8)
  - Forearm fracture [Recovered/Resolved]
  - Pleural effusion [Recovered/Resolved]
  - COVID-19 [Recovered/Resolved]
  - Weight decreased [Recovered/Resolved]
  - Fall [Recovered/Resolved]
  - Incorrect dose administered [Not Recovered/Not Resolved]
  - Sinusitis [Recovered/Resolved]
  - Smoke sensitivity [Unknown]

NARRATIVE: CASE EVENT DATE: 202009
